FAERS Safety Report 9439598 (Version 1)
Quarter: 2013Q3

REPORT INFORMATION
  Report Type: Spontaneous
  Country: US (occurrence: None)
  Receive Date: 20130802
  Receipt Date: 20130802
  Transmission Date: 20140515
  Serious: Yes (Hospitalization)
  Sender: FDA-Public Use
  Company Number: None

PATIENT
  Age: 5 Day
  Sex: Male
  Weight: 3 kg

DRUGS (2)
  1. J+J BABY HEAD TO TOE BABY WASH [Suspect]
     Indication: DRY SKIN PROPHYLAXIS
     Route: 061
     Dates: start: 20130703, end: 20130704
  2. J+J BABY LOTION [Suspect]

REACTIONS (2)
  - Dermatitis allergic [None]
  - Rash neonatal [None]
